FAERS Safety Report 13490893 (Version 1)
Quarter: 2017Q2

REPORT INFORMATION
  Report Type: Report from Study
  Country: FR (occurrence: FR)
  Receive Date: 20170427
  Receipt Date: 20170427
  Transmission Date: 20170830
  Serious: Yes (Death, Hospitalization)
  Sender: FDA-Public Use
  Company Number: FR-TEVA-762349ROM

PATIENT
  Age: 41 Year
  Sex: Female

DRUGS (5)
  1. ESCITALOPRAM [Suspect]
     Active Substance: ESCITALOPRAM OXALATE
     Indication: POISONING
     Route: 065
  2. DEXTROPROPOXYPHENE [Concomitant]
     Active Substance: PROPOXYPHENE HYDROCHLORIDE
     Route: 065
  3. PARACETAMOL [Concomitant]
     Active Substance: ACETAMINOPHEN
     Route: 065
  4. VALPROMIDE [Concomitant]
     Active Substance: VALPROMIDE
     Route: 065
  5. BACLOFEN. [Suspect]
     Active Substance: BACLOFEN
     Indication: OFF LABEL USE
     Route: 048

REACTIONS (3)
  - Unresponsive to stimuli [Unknown]
  - Toxicity to various agents [Fatal]
  - Off label use [Fatal]
